FAERS Safety Report 8942634 (Version 2)
Quarter: 2012Q4

REPORT INFORMATION
  Report Type: 
  Country: US (occurrence: US)
  Receive Date: 20121121
  Receipt Date: 20121212
  Transmission Date: 20130627
  Serious: Yes (Death, Other)
  Sender: FDA-Public Use
  Company Number: US-ASTELLAS-1105993

PATIENT
  Age: 68 Year
  Sex: Female

DRUGS (3)
  1. TARCEVA [Suspect]
     Indication: PANCREATIC CARCINOMA
     Route: 065
     Dates: start: 20050918, end: 20050922
  2. TARCEVA [Suspect]
     Indication: PANCREATIC CARCINOMA
  3. GEMCITABINE [Concomitant]

REACTIONS (4)
  - Pancreatic carcinoma metastatic [Fatal]
  - Pneumonia [Unknown]
  - Diarrhoea [Recovered/Resolved]
  - Acne [Recovered/Resolved]
